FAERS Safety Report 4766883-0 (Version None)
Quarter: 2005Q3

REPORT INFORMATION
  Report Type: 
  Country: None (occurrence: None)
  Receive Date: 20050909
  Receipt Date: 20050826
  Transmission Date: 20060218
  Serious: Yes (Hospitalization)
  Sender: FDA-Public Use
  Company Number: 2005121259

PATIENT
  Age: 57 Year
  Sex: Male
  Weight: 69 kg

DRUGS (2)
  1. ATORVASTATIN CALCIUM [Suspect]
     Indication: ILL-DEFINED DISORDER
     Dosage: ORAL
     Route: 048
     Dates: start: 19991228, end: 20000128
  2. TAMSULOSIN HCL [Suspect]
     Indication: ILL-DEFINED DISORDER
     Dosage: 0.4 MG (1 IN 1 D), ORAL
     Route: 048
     Dates: start: 19991228, end: 20000128

REACTIONS (3)
  - LABORATORY TEST ABNORMAL [None]
  - PRIAPISM [None]
  - THERAPY NON-RESPONDER [None]
